FAERS Safety Report 8396621-4 (Version None)
Quarter: 2012Q2

REPORT INFORMATION
  Report Type: 
  Country: None (occurrence: None)
  Receive Date: 20120530
  Receipt Date: 20120525
  Transmission Date: 20120825
  Serious: No
  Sender: FDA-Public Use
  Company Number: US-PFIZER INC-2012127226

PATIENT
  Sex: Male
  Weight: 74.83 kg

DRUGS (1)
  1. IBUPROFEN (ADVIL) [Suspect]
     Indication: PAIN
     Dosage: 400 MG (TWO 200MG), 1X/DAY
     Route: 048
     Dates: start: 20120524, end: 20120524

REACTIONS (1)
  - NERVOUSNESS [None]
